FAERS Safety Report 15498831 (Version 1)
Quarter: 2018Q4

REPORT INFORMATION
  Report Type: Spontaneous
  Country: US (occurrence: US)
  Receive Date: 20181005
  Receipt Date: 20181005
  Transmission Date: 20190205
  Serious: Yes (Other)
  Sender: FDA-Public Use
  Company Number: None

PATIENT
  Age: 60 Year
  Sex: Female
  Weight: 63 kg

DRUGS (1)
  1. ISOVUE 370 [Suspect]
     Active Substance: IOPAMIDOL

REACTIONS (7)
  - Respiratory disorder [None]
  - Eye irritation [None]
  - Eye pain [None]
  - Chest discomfort [None]
  - Contrast media reaction [None]
  - Chest pain [None]
  - Pain [None]

NARRATIVE: CASE EVENT DATE: 20180801
